FAERS Safety Report 7609633-2 (Version None)
Quarter: 2011Q3

REPORT INFORMATION
  Report Type: 
  Country: None (occurrence: None)
  Receive Date: 20110714
  Receipt Date: 20110706
  Transmission Date: 20111222
  Serious: Yes (Hospitalization)
  Sender: FDA-Public Use
  Company Number: PHHY2011MX45487

PATIENT
  Age: 71 Year
  Sex: Male

DRUGS (2)
  1. EXELON [Suspect]
     Indication: BRAIN INJURY
     Dosage: 9.5 MG, (1 PATCH PER DAY)
     Route: 062
     Dates: start: 20110501, end: 20110515
  2. EXELON [Suspect]
     Dosage: 0.5 DF, (HALF PATCH)
     Route: 062
     Dates: start: 20110515, end: 20110530

REACTIONS (5)
  - NERVOUSNESS [None]
  - SLEEP DISORDER [None]
  - RESTLESSNESS [None]
  - WRONG TECHNIQUE IN DRUG USAGE PROCESS [None]
  - DEPRESSION [None]
